FAERS Safety Report 23447168 (Version 2)
Quarter: 2024Q1

REPORT INFORMATION
  Report Type: Spontaneous
  Country: US (occurrence: US)
  Receive Date: 20240126
  Receipt Date: 20240129
  Transmission Date: 20240409
  Serious: No
  Sender: FDA-Public Use
  Company Number: US-PFIZER INC-202400023697

PATIENT
  Age: 57 Year
  Sex: Female
  Weight: 66.68 kg

DRUGS (1)
  1. PREMARIN [Suspect]
     Active Substance: ESTROGENS, CONJUGATED
     Indication: Vaginal disorder
     Dosage: UNK, 2X/WEEK
     Route: 067

REACTIONS (2)
  - Drug hypersensitivity [Unknown]
  - Hypertension [Unknown]
